FAERS Safety Report 22387204 (Version 1)
Quarter: 2023Q2

REPORT INFORMATION
  Report Type: Report from Study
  Country: IT (occurrence: IT)
  Receive Date: 20230531
  Receipt Date: 20230531
  Transmission Date: 20230722
  Serious: Yes (Hospitalization, Other)
  Sender: FDA-Public Use
  Company Number: None

PATIENT
  Age: 12 Year
  Sex: Female
  Weight: 39 kg

DRUGS (3)
  1. VINCRISTINE [Suspect]
     Active Substance: VINCRISTINE
     Indication: Ewing^s sarcoma
     Dosage: 1.9 MILLIGRAM DAILY; 1.9 MG/DAY
     Route: 065
     Dates: start: 20230411, end: 20230411
  2. IFOSFAMIDE [Suspect]
     Active Substance: IFOSFAMIDE
     Indication: Ewing^s sarcoma
     Dosage: 3798 MILLIGRAM DAILY; 3798 MG/DAY
     Route: 065
     Dates: start: 20230411, end: 20230413
  3. COSMEGEN [Suspect]
     Active Substance: DACTINOMYCIN
     Indication: Ewing^s sarcoma
     Dosage: 1.9 MILLIGRAM DAILY; 1.9 MG/DAY
     Route: 065
     Dates: start: 20230411, end: 20230411

REACTIONS (3)
  - Anaemia [Recovering/Resolving]
  - Febrile neutropenia [Not Recovered/Not Resolved]
  - Constipation [Recovering/Resolving]

NARRATIVE: CASE EVENT DATE: 20230420
